FAERS Safety Report 14790667 (Version 1)
Quarter: 2018Q2

REPORT INFORMATION
  Report Type: Spontaneous
  Country: US (occurrence: US)
  Receive Date: 20180413
  Receipt Date: 20180413
  Transmission Date: 20180711
  Serious: Yes (Other)
  Sender: FDA-Public Use
  Company Number: None

PATIENT
  Age: 75 Year
  Sex: Male
  Weight: 81 kg

DRUGS (4)
  1. ASPIRIN. [Concomitant]
     Active Substance: ASPIRIN
  2. DOXYCYCLINE MONOHYDRATE [Suspect]
     Active Substance: DOXYCYCLINE
     Indication: BACTERIAL INFECTION
     Dosage: ?          QUANTITY:14 TABLET(S);?
     Route: 048
     Dates: start: 20180329, end: 20180405
  3. MULTIVITAMINS [Concomitant]
     Active Substance: VITAMINS
  4. FISH OIL [Concomitant]
     Active Substance: FISH OIL

REACTIONS (3)
  - Drug ineffective [None]
  - Pain [None]
  - Condition aggravated [None]

NARRATIVE: CASE EVENT DATE: 20180329
